FAERS Safety Report 8102570-9 (Version None)
Quarter: 2011Q4

REPORT INFORMATION
  Report Type: 
  Country: None (occurrence: None)
  Receive Date: 20111222
  Receipt Date: 20110826
  Transmission Date: 20120403
  Serious: Yes (Life-Threatening)
  Sender: FDA-Public Use
  Company Number: UTC-009786

PATIENT
  Age: 60 Year
  Sex: Female
  Weight: 80.3 kg

DRUGS (4)
  1. DALIRESP [Concomitant]
  2. XIFAXAN (RIFAXIMIN) [Concomitant]
  3. DIURETICS (DIURETICS) [Concomitant]
  4. TYVASO [Suspect]
     Indication: PULMONARY ARTERIAL HYPERTENSION
     Dosage: 72 MCG (18 MCG, 4 IN 1 D), INHALATION
     Route: 055
     Dates: start: 20110810

REACTIONS (5)
  - HEADACHE [None]
  - DIZZINESS [None]
  - NAUSEA [None]
  - BLOOD POTASSIUM DECREASED [None]
  - BLOOD GLUCOSE DECREASED [None]
